FAERS Safety Report 9308792 (Version 1)
Quarter: 2013Q2

REPORT INFORMATION
  Report Type: Not Available
  Country: None (occurrence: US)
  Receive Date: 20130524
  Receipt Date: 20130524
  Transmission Date: 20140414
  Serious: Yes (Other)
  Sender: FDA-Public Use
  Company Number: US-FOUGERA-2013FO000143

PATIENT
  Sex: Female
  Weight: 60.84 kg

DRUGS (1)
  1. IMIQUIMOD [Suspect]
     Indication: PRECANCEROUS SKIN LESION
     Dosage: PRODUCT APPLIED THE AREAS OF HER?FACE AND BACK ?FOR TWO WEEKS,?STOP FOR TWO WEEKS, THEN AGAIN FOR?TW
     Route: 061
     Dates: start: 2013, end: 2013

REACTIONS (7)
  - Lymphadenopathy [Not Recovered/Not Resolved]
  - Thymus enlargement [Not Recovered/Not Resolved]
  - Pain in jaw [Not Recovered/Not Resolved]
  - Neck pain [Not Recovered/Not Resolved]
  - Malaise [Not Recovered/Not Resolved]
  - Nasopharyngitis [Not Recovered/Not Resolved]
  - Chest pain [Not Recovered/Not Resolved]
